FAERS Safety Report 15897242 (Version 12)
Quarter: 2020Q2

REPORT INFORMATION
  Report Type: Report from Study
  Country: US (occurrence: US)
  Receive Date: 20190131
  Receipt Date: 20200618
  Transmission Date: 20200713
  Serious: Yes (Hospitalization)
  Sender: FDA-Public Use
  Company Number: US-ACTELION-A-US2019-185309

PATIENT
  Age: 62 Year
  Sex: Female
  Weight: 60.77 kg

DRUGS (4)
  1. REMODULIN [Concomitant]
     Active Substance: TREPROSTINIL
  2. TADALAFIL. [Concomitant]
     Active Substance: TADALAFIL
  3. MUCINEX [Concomitant]
     Active Substance: GUAIFENESIN
  4. OPSUMIT [Suspect]
     Active Substance: MACITENTAN
     Indication: PULMONARY ARTERIAL HYPERTENSION
     Dosage: 10 MG, QD
     Route: 048
     Dates: start: 20190113

REACTIONS (22)
  - Insomnia [Not Recovered/Not Resolved]
  - Cough [Unknown]
  - Pyrexia [Unknown]
  - Unevaluable event [Unknown]
  - Abdominal distension [Unknown]
  - Constipation [Unknown]
  - Fluid retention [Unknown]
  - Palpitations [Recovering/Resolving]
  - Gastrointestinal pain [Not Recovered/Not Resolved]
  - Oedema peripheral [Unknown]
  - Nasopharyngitis [Unknown]
  - Rales [Unknown]
  - Visual impairment [Unknown]
  - Dyspnoea [Recovering/Resolving]
  - Diarrhoea [Unknown]
  - Decreased appetite [Recovering/Resolving]
  - Restless legs syndrome [Not Recovered/Not Resolved]
  - Gastrointestinal inflammation [Not Recovered/Not Resolved]
  - Faeces hard [Not Recovered/Not Resolved]
  - Hospitalisation [Unknown]
  - Fluid overload [Unknown]
  - Road traffic accident [Unknown]

NARRATIVE: CASE EVENT DATE: 20190115
